FAERS Safety Report 17939476 (Version 3)
Quarter: 2020Q4

REPORT INFORMATION
  Report Type: Spontaneous
  Country: FR (occurrence: FR)
  Receive Date: 20200624
  Receipt Date: 20201002
  Transmission Date: 20210113
  Serious: Yes (Other)
  Sender: FDA-Public Use
  Company Number: FR-VERITY PHARMACEUTICALS, INC.-2020VTY00003

PATIENT
  Age: 57 Year
  Sex: Male
  Weight: 110 kg

DRUGS (3)
  1. TRELSTAR [Suspect]
     Active Substance: TRIPTORELIN PAMOATE
     Indication: PROSTATE CANCER
     Dosage: 22.5 MG, ONCE IN SIX MONTHS ^IN THE BUTTOCK^
     Route: 030
     Dates: start: 201707
  2. TRELSTAR [Suspect]
     Active Substance: TRIPTORELIN PAMOATE
     Dosage: 22.5 MG, ONCE IN SIX MONTHS ^IN THE BUTTOCK^
     Route: 030
     Dates: start: 20200508
  3. TRELSTAR [Suspect]
     Active Substance: TRIPTORELIN PAMOATE
     Dosage: 22.5 MG, ONCE IN SIX MONTHS ^IN THE BUTTOCK^
     Route: 030
     Dates: start: 20191123

REACTIONS (6)
  - Underdose [Unknown]
  - Product quality issue [Unknown]
  - Needle issue [Unknown]
  - Incorrect dose administered [Unknown]
  - Prostatic specific antigen increased [Unknown]
  - Wrong technique in product usage process [Unknown]

NARRATIVE: CASE EVENT DATE: 20191123
